FAERS Safety Report 6761661-5 (Version None)
Quarter: 2010Q2

REPORT INFORMATION
  Report Type: 
  Country: None (occurrence: None)
  Receive Date: 20100609
  Receipt Date: 20100601
  Transmission Date: 20101027
  Serious: No
  Sender: FDA-Public Use
  Company Number: US-BIOGENIDEC-2010BI018684

PATIENT
  Age: 46 Year
  Sex: Female

DRUGS (1)
  1. TYSABRI [Suspect]
     Indication: MULTIPLE SCLEROSIS
     Route: 042
     Dates: start: 20100106

REACTIONS (6)
  - BURNING SENSATION [None]
  - GAIT DISTURBANCE [None]
  - LHERMITTE'S SIGN [None]
  - MUSCULAR WEAKNESS [None]
  - PRURITUS GENERALISED [None]
  - TREMOR [None]
